FAERS Safety Report 20790497 (Version 1)
Quarter: 2022Q2

REPORT INFORMATION
  Report Type: Spontaneous
  Country: HR (occurrence: HR)
  Receive Date: 20220505
  Receipt Date: 20220505
  Transmission Date: 20220720
  Serious: Yes (Other)
  Sender: FDA-Public Use
  Company Number: None

PATIENT
  Sex: Male

DRUGS (3)
  1. CLOPIDOGREL [Suspect]
     Active Substance: CLOPIDOGREL BISULFATE
     Dosage: 10TBL., KLOPIDOGREL, FREQUENCY TIME 1 DAY, ADR IS ADEQUATLY LABELLED: SOMNOLENCE
     Route: 048
     Dates: start: 20220311, end: 20220311
  2. ASPIRIN [Suspect]
     Active Substance: ASPIRIN
     Dosage: UNIT DOSE: 1 GRAM, FREQUENCY TIME : 1 DAY, ADR IS ADEQUATLY LABELLED: SOMNOLENCE
     Route: 048
     Dates: start: 20220311, end: 20220311
  3. ZOLPIDEM TARTRATE [Suspect]
     Active Substance: ZOLPIDEM TARTRATE
     Dosage: 10TBL., FREQUENCY TIME : 1 DAY
     Route: 048
     Dates: start: 20220311, end: 20220311

REACTIONS (3)
  - Somnolence [Unknown]
  - Intentional overdose [Unknown]
  - Suicide attempt [Unknown]

NARRATIVE: CASE EVENT DATE: 20220311
